FAERS Safety Report 19384207 (Version 1)
Quarter: 2021Q2

REPORT INFORMATION
  Report Type: Spontaneous
  Country: PT (occurrence: PT)
  Receive Date: 20210608
  Receipt Date: 20210608
  Transmission Date: 20210717
  Serious: Yes (Other)
  Sender: FDA-Public Use
  Company Number: PT-AUROBINDO-AUR-APL-2021-022789

PATIENT
  Age: 79 Year
  Sex: Female

DRUGS (2)
  1. DICLOFENAC [Suspect]
     Active Substance: DICLOFENAC
     Indication: OSTEOARTHRITIS
     Dosage: UNK
     Route: 065
  2. DICLOFENAC [Suspect]
     Active Substance: DICLOFENAC
     Indication: OSTEOARTHRITIS

REACTIONS (8)
  - Hypochromic anaemia [Recovered/Resolved]
  - Gastrointestinal disorder [Unknown]
  - Asthenia [Unknown]
  - Iron deficiency anaemia [Recovered/Resolved]
  - Ulcer [Unknown]
  - Abdominal pain upper [Unknown]
  - Microcytic anaemia [Recovered/Resolved]
  - Haematochezia [Unknown]
